FAERS Safety Report 21572989 (Version 1)
Quarter: 2022Q4

REPORT INFORMATION
  Report Type: Spontaneous
  Country: US (occurrence: None)
  Receive Date: 20221108
  Receipt Date: 20221108
  Transmission Date: 20230112
  Serious: Yes (Hospitalization)
  Sender: FDA-Public Use
  Company Number: None

PATIENT
  Age: 75 Year
  Sex: Female
  Weight: 65.32 kg

DRUGS (18)
  1. CAPECITABINE [Suspect]
     Active Substance: CAPECITABINE
     Indication: Breast cancer female
     Dosage: FREQUENCY : TWICE A DAY;?
     Route: 048
     Dates: start: 202210
  2. AMOXICILLIN [Concomitant]
     Active Substance: AMOXICILLIN
  3. CALCIUM [Concomitant]
     Active Substance: CALCIUM
  4. CRANBERRY [Concomitant]
     Active Substance: CRANBERRY
  5. ELIQUIS [Concomitant]
     Active Substance: APIXABAN
  6. GABAPENTIN [Concomitant]
     Active Substance: GABAPENTIN
  7. GEMCITABINE [Concomitant]
     Active Substance: GEMCITABINE
  8. LOVASTATIN [Concomitant]
     Active Substance: LOVASTATIN
  9. MOVANTIK [Concomitant]
     Active Substance: NALOXEGOL OXALATE
  10. VITAMINS [Concomitant]
     Active Substance: VITAMINS
  11. ONDANSETRON [Concomitant]
     Active Substance: ONDANSETRON
  12. ACETAMINOPHEN\OXYCODONE HYDROCHLORIDE [Concomitant]
     Active Substance: ACETAMINOPHEN\OXYCODONE HYDROCHLORIDE
  13. PROCHLORPERAZINE [Concomitant]
     Active Substance: PROCHLORPERAZINE
  14. PRORENAL+D [Concomitant]
  15. TYLENOL [Concomitant]
     Active Substance: ACETAMINOPHEN
  16. VERZENO [Concomitant]
  17. VITAMIN D3 [Concomitant]
     Active Substance: CHOLECALCIFEROL
  18. XGEVA [Concomitant]
     Active Substance: DENOSUMAB

REACTIONS (3)
  - Gastrointestinal disorder [None]
  - Nausea [None]
  - Diarrhoea haemorrhagic [None]

NARRATIVE: CASE EVENT DATE: 20221010
